FAERS Safety Report 6132602-9 (Version None)
Quarter: 2009Q1

REPORT INFORMATION
  Report Type: 
  Country: None (occurrence: None)
  Receive Date: 20090324
  Receipt Date: 20090313
  Transmission Date: 20090719
  Serious: Yes (Death, Life-Threatening)
  Sender: FDA-Public Use
  Company Number: MSTR-NO-0903S-0064

PATIENT
  Age: 55 Year
  Sex: Male
  Weight: 90 kg

DRUGS (1)
  1. METASTRON [Suspect]
     Indication: METASTATIC PAIN
     Dosage: SINGLE DOSE, I.V.
     Route: 042
     Dates: start: 20090203, end: 20090203

REACTIONS (3)
  - NO THERAPEUTIC RESPONSE [None]
  - SEPSIS [None]
  - WHITE BLOOD CELL COUNT DECREASED [None]
